FAERS Safety Report 9999072 (Version 1)
Quarter: 2014Q1

REPORT INFORMATION
  Report Type: Spontaneous
  Country: CA (occurrence: CA)
  Receive Date: 20140312
  Receipt Date: 20140312
  Transmission Date: 20141002
  Serious: Yes (Life-Threatening)
  Sender: FDA-Public Use
  Company Number: CA-ROCHE-1361140

PATIENT
  Age: 48 Year
  Sex: Female
  Weight: 84.9 kg

DRUGS (15)
  1. RIBAVIRIN [Suspect]
     Indication: PRODUCT USED FOR UNKNOWN INDICATION
     Dosage: THERAPY DURATION: 3.0 DAYS
     Route: 055
  2. RIBAVIRIN [Suspect]
     Dosage: THERAPY DURATION: 3.0 DAYS
     Route: 042
  3. RIBAVIRIN [Suspect]
     Dosage: DOSE: 2.0 GRAIN, THERAPY DURATION: 1.0 MONTH
     Route: 055
  4. CIPROFLOXACIN [Concomitant]
     Route: 065
  5. DOCUSATE SODIUM [Concomitant]
     Route: 065
  6. FENTANYL [Concomitant]
     Route: 065
  7. HEPARIN SODIUM [Concomitant]
     Route: 058
  8. IPRATROPIUM [Concomitant]
     Route: 065
  9. METHYLPREDNISOLONE [Concomitant]
     Route: 065
  10. METOCLOPRAMIDE [Concomitant]
     Route: 065
  11. MYCAMINE [Concomitant]
     Route: 042
  12. NOREPINEPHRINE [Concomitant]
     Route: 065
  13. PHENYTOIN [Concomitant]
     Route: 065
  14. SALBUTAMOL [Concomitant]
     Route: 065
  15. VANCOMYCIN [Concomitant]
     Route: 065

REACTIONS (1)
  - Hyperlipasaemia [Recovered/Resolved]
